FAERS Safety Report 8210335-2 (Version None)
Quarter: 2012Q1

REPORT INFORMATION
  Report Type: 
  Country: None (occurrence: None)
  Receive Date: 20120314
  Receipt Date: 20120305
  Transmission Date: 20120608
  Serious: Yes (Other)
  Sender: FDA-Public Use
  Company Number: CA-ASTRAZENECA-2012SE16427

PATIENT
  Age: 55 Year
  Sex: Male

DRUGS (4)
  1. NEXIUM [Suspect]
     Indication: GASTROOESOPHAGEAL REFLUX DISEASE
     Route: 048
     Dates: start: 20120106
  2. NEXIUM [Suspect]
     Route: 048
  3. DIGOXIN [Concomitant]
     Indication: CARDIAC DISORDER
  4. CARVEDILOL [Concomitant]
     Indication: CARDIAC DISORDER

REACTIONS (2)
  - PALPITATIONS [None]
  - INAPPROPRIATE SCHEDULE OF DRUG ADMINISTRATION [None]
